FAERS Safety Report 5705136-0 (Version None)
Quarter: 2008Q2

REPORT INFORMATION
  Report Type: 
  Country: None (occurrence: None)
  Receive Date: 20080410
  Receipt Date: 20080327
  Transmission Date: 20081010
  Serious: Yes (Hospitalization)
  Sender: FDA-Public Use
  Company Number: 2008S1005187

PATIENT
  Age: 22 Year
  Sex: Female

DRUGS (2)
  1. SERTRALINE [Suspect]
     Dosage: 50 MG; DAILY
  2. IRON [Concomitant]

REACTIONS (6)
  - ASTHENIA [None]
  - BLOOD CREATINE PHOSPHOKINASE INCREASED [None]
  - BLOOD URINE PRESENT [None]
  - MYOGLOBINURIA [None]
  - OEDEMA [None]
  - PAIN [None]
